FAERS Safety Report 9229066 (Version 2)
Quarter: 2013Q2

REPORT INFORMATION
  Report Type: Spontaneous
  Country: BR (occurrence: BR)
  Receive Date: 20130412
  Receipt Date: 20130426
  Transmission Date: 20140414
  Serious: Yes (Hospitalization)
  Sender: FDA-Public Use
  Company Number: BR-ASTRAZENECA-2013SE22490

PATIENT
  Age: 65 Year
  Sex: Male

DRUGS (3)
  1. CRESTOR [Suspect]
     Indication: ATHEROSCLEROSIS PROPHYLAXIS
     Route: 048
     Dates: start: 2012, end: 201301
  2. CRESTOR [Suspect]
     Indication: ATHEROSCLEROSIS PROPHYLAXIS
     Route: 048
     Dates: start: 201301
  3. VICTOZA [Concomitant]

REACTIONS (1)
  - Coronary artery occlusion [Recovered/Resolved]
